FAERS Safety Report 13180838 (Version 1)
Quarter: 2017Q1

REPORT INFORMATION
  Report Type: Spontaneous
  Country: US (occurrence: US)
  Receive Date: 20170202
  Receipt Date: 20170202
  Transmission Date: 20170428
  Serious: No
  Sender: FDA-Public Use
  Company Number: US-SMITH AND NEPHEW, INC-2016SMT00494

PATIENT
  Age: 60 Year
  Sex: Male
  Weight: 63.49 kg

DRUGS (4)
  1. UNSPECIFIED MEDICATION FOR HEART RHYTHM PROBLEM [Concomitant]
  2. LANTUS [Concomitant]
     Active Substance: INSULIN GLARGINE
  3. UNSPECIFIED MEDICATION FOR CHOLESTEROL [Concomitant]
  4. REGRANEX [Suspect]
     Active Substance: BECAPLERMIN
     Indication: WOUND
     Dosage: UNK UNK, 1X/DAY
     Route: 061
     Dates: start: 20160527

REACTIONS (3)
  - Application site discolouration [Unknown]
  - Wound complication [Recovering/Resolving]
  - Wound secretion [Recovering/Resolving]

NARRATIVE: CASE EVENT DATE: 201605
